FAERS Safety Report 21309234 (Version 1)
Quarter: 2022Q3

REPORT INFORMATION
  Report Type: Spontaneous
  Country: JP (occurrence: JP)
  Receive Date: 20220908
  Receipt Date: 20220908
  Transmission Date: 20221026
  Serious: Yes (Hospitalization, Other)
  Sender: FDA-Public Use
  Company Number: JP-SA-SAC20220907000014

PATIENT
  Age: 8 Decade
  Sex: Female

DRUGS (3)
  1. OXALIPLATIN [Suspect]
     Active Substance: OXALIPLATIN
     Indication: Rectal cancer
     Dosage: DAILY DOSE: UNKNOWN ELPLAT I.V. INFUSION SOLUTION (OXALIPLATIN) INJECTION
     Route: 065
  2. LEVOLEUCOVORIN CALCIUM [Concomitant]
     Active Substance: LEVOLEUCOVORIN CALCIUM
  3. FLUOROURACIL [Concomitant]
     Active Substance: FLUOROURACIL

REACTIONS (6)
  - Sepsis [Unknown]
  - Colitis ischaemic [Recovering/Resolving]
  - Intestinal prolapse [Unknown]
  - Colonic fistula [Unknown]
  - Gallbladder fistula [Unknown]
  - Ileus paralytic [Unknown]
